FAERS Safety Report 9888948 (Version 3)
Quarter: 2014Q2

REPORT INFORMATION
  Report Type: Spontaneous
  Country: IT (occurrence: IT)
  Receive Date: 20140211
  Receipt Date: 20140501
  Transmission Date: 20141212
  Serious: Yes (Other)
  Sender: FDA-Public Use
  Company Number: IT-GLAXOSMITHKLINE-B0967601A

PATIENT
  Age: 50 Year
  Sex: Male

DRUGS (1)
  1. BACTROBAN CREAM [Suspect]
     Indication: RHINITIS
     Route: 065

REACTIONS (6)
  - Laryngeal oedema [Not Recovered/Not Resolved]
  - Facial pain [Not Recovered/Not Resolved]
  - Rhinalgia [Not Recovered/Not Resolved]
  - Larynx irritation [Not Recovered/Not Resolved]
  - Drug administration error [Not Recovered/Not Resolved]
  - Incorrect route of drug administration [Not Recovered/Not Resolved]
